FAERS Safety Report 5645536-0 (Version None)
Quarter: 2008Q1

REPORT INFORMATION
  Report Type: 
  Country: None (occurrence: None)
  Receive Date: 20080229
  Receipt Date: 20080215
  Transmission Date: 20080703
  Serious: Yes (Hospitalization)
  Sender: FDA-Public Use
  Company Number: DE-BAYER-200811548GPV

PATIENT
  Age: 12 Year
  Sex: Male
  Weight: 60 kg

DRUGS (2)
  1. ULTRAVIST 150 [Suspect]
     Indication: COMPUTERISED TOMOGRAM
     Route: 042
     Dates: start: 20080116, end: 20080116
  2. METHIONINE [Concomitant]
     Indication: POSITRON EMISSION TOMOGRAM
     Dosage: UNIT DOSE: 144 MBQ
     Route: 065

REACTIONS (4)
  - CONVULSION [None]
  - DYSPNOEA [None]
  - EPISTAXIS [None]
  - HYPERTENSIVE CRISIS [None]
